FAERS Safety Report 7819603-7 (Version None)
Quarter: 2011Q4

REPORT INFORMATION
  Report Type: 
  Country: None (occurrence: None)
  Receive Date: 20111018
  Receipt Date: 20111018
  Transmission Date: 20120403
  Serious: Yes (Other)
  Sender: FDA-Public Use
  Company Number: None

PATIENT
  Age: 64 Year
  Sex: Female
  Weight: 108.86 kg

DRUGS (1)
  1. TRAMADOL HCL [Suspect]
     Indication: PAIN
     Dosage: 50MG
     Dates: start: 20111003, end: 20111011

REACTIONS (8)
  - PRODUCT SUBSTITUTION ISSUE [None]
  - ECONOMIC PROBLEM [None]
  - DRUG INEFFECTIVE [None]
  - PRODUCT TASTE ABNORMAL [None]
  - ABDOMINAL DISTENSION [None]
  - APNOEA [None]
  - UNEVALUABLE EVENT [None]
  - ASTHMA [None]
